FAERS Safety Report 24649704 (Version 4)
Quarter: 2024Q4

REPORT INFORMATION
  Report Type: Report from Study
  Country: PT (occurrence: PT)
  Receive Date: 20241121
  Receipt Date: 20241206
  Transmission Date: 20250115
  Serious: Yes (Other)
  Sender: ABBVIE
  Company Number: PT-ABBVIE-6010311

PATIENT
  Sex: Female

DRUGS (22)
  1. CARBIDOPA\LEVODOPA [Suspect]
     Active Substance: CARBIDOPA\LEVODOPA
     Indication: Parkinson^s disease
     Dosage: 240 MG + 12 MG, FREQUENCY TEXT: LO:1.5;HI:0.76;BA:0.61;LO:0.45;EX:0.2
     Route: 058
     Dates: start: 202411, end: 202411
  2. CARBIDOPA\LEVODOPA [Suspect]
     Active Substance: CARBIDOPA\LEVODOPA
     Dosage: 240 MG + 12 MG, FREQUENCY TEXT: LO:1.5;HI:0.78;BA:0.65;LO:0.49;EX:0.2, LAST ADMIN DATE: NOV 2024
     Route: 058
     Dates: start: 20241104
  3. CARBIDOPA\LEVODOPA [Suspect]
     Active Substance: CARBIDOPA\LEVODOPA
     Dosage: 240 MG + 12 MG, FREQUENCY TEXT: LO:1.5;HI:0.78;BA:0.65;LO:0.49;EX:0.2
     Route: 058
     Dates: start: 202411, end: 20241202
  4. CARBIDOPA\LEVODOPA [Suspect]
     Active Substance: CARBIDOPA\LEVODOPA
     Dosage: 240 MG + 12 MG, FREQUENCY TEXT: LO:1.5;HI:0.78;BA:0.69;LO:0.49;EX:0.25
     Route: 058
     Dates: start: 20241202
  5. OPICAPONE [Concomitant]
     Active Substance: OPICAPONE
     Indication: Parkinson^s disease
     Dosage: AT BEDTIME
     Route: 048
     Dates: start: 20241129
  6. XADAGO [Concomitant]
     Active Substance: SAFINAMIDE MESYLATE
     Indication: Parkinson^s disease
     Dosage: 1 TABLET, FREQUENCY TEXT: IN THE MORNING, START DATE TEXT: BEFORE DUODOPA
  7. QUETIAPINE [Concomitant]
     Active Substance: QUETIAPINE
     Indication: Product used for unknown indication
     Dosage: 1 TABLET, FREQUENCY TEXT: AT DINNER, START DATE TEXT: BEFORE DUODOPA
  8. REQUIP [Concomitant]
     Active Substance: ROPINIROLE HYDROCHLORIDE
     Indication: Product used for unknown indication
     Dosage: 1 TABLET, FREQUENCY TEXT: IN THE MORNING, START DATE TEXT: BEFORE DUODOPA
  9. Modureti (Amiloride) [Concomitant]
     Indication: Product used for unknown indication
     Dosage: START DATE TEXT: BEFORE DUODOPA
  10. Calcitab [Concomitant]
     Indication: Product used for unknown indication
     Dosage: START DATE TEXT: BEFORE DUODOPA
  11. VENLAFAXINE HYDROCHLORIDE [Concomitant]
     Active Substance: VENLAFAXINE HYDROCHLORIDE
     Indication: Product used for unknown indication
     Dosage: 150 + 37.5 MG, START DATE TEXT: BEFORE DUODOPA
  12. ELIQUIS [Concomitant]
     Active Substance: APIXABAN
     Indication: Product used for unknown indication
     Dosage: 1 TABLET, START DATE TEXT: BEFORE DUODOPA
  13. HUMAN BLOOD VESSEL [Concomitant]
     Active Substance: HUMAN BLOOD VESSEL
     Indication: Product used for unknown indication
     Dosage: START DATE TEXT: BEFORE DUODOPA
  14. MOLINAR [Concomitant]
     Indication: Product used for unknown indication
     Dosage: START DATE TEXT: BEFORE DUODOPA
  15. BENSERAZIDE HYDROCHLORIDE\LEVODOPA [Concomitant]
     Active Substance: BENSERAZIDE HYDROCHLORIDE\LEVODOPA
     Indication: Product used for unknown indication
     Dosage: 200/50, FREQUENCY TEXT: 9.30H+12H+17H+19.30H+ 22H, START DATE TEXT: BEFORE DUODOPA, STOP DATE TEX...
  16. LASIX [Concomitant]
     Active Substance: FUROSEMIDE
     Indication: Product used for unknown indication
     Dosage: START DATE TEXT: BEFORE DUODOPA FORM STRENGTH: 40 MG
  17. AMANTADINE HYDROCHLORIDE [Concomitant]
     Active Substance: AMANTADINE HYDROCHLORIDE
     Indication: Parkinson^s disease
     Dosage: FREQUENCY TEXT: 1 TAB AT 9H AND AT 12H, START DATE TEXT: BEFORE DUODOPA?FORM STRENGTH: 100 MG
  18. AMANTADINE HYDROCHLORIDE [Concomitant]
     Active Substance: AMANTADINE HYDROCHLORIDE
     Indication: Parkinson^s disease
     Dosage: 2 TABLES
  19. STALEVO [Concomitant]
     Active Substance: CARBIDOPA\ENTACAPONE\LEVODOPA
     Indication: Product used for unknown indication
     Dosage: 200/50, FREQUENCY TEXT: 7AM AND 2.30PM, START DATE TEXT: BEFORE DUODOPA, STOP DATE TEXT: AFTER DU...
  20. PANTOPRAZOLE [Concomitant]
     Active Substance: PANTOPRAZOLE
     Indication: Product used for unknown indication
     Dosage: START DATE TEXT: BEFORE DUODOPA
  21. RIVOTRIL [Concomitant]
     Active Substance: CLONAZEPAM
     Indication: Product used for unknown indication
     Dosage: 2 TABLET,  FREQUENCY TEXT: AT NIGHT, START DATE TEXT: BEFORE DUODOPA
  22. BENSERAZIDE HYDROCHLORIDE\LEVODOPA [Concomitant]
     Active Substance: BENSERAZIDE HYDROCHLORIDE\LEVODOPA
     Indication: Product used for unknown indication
     Dosage: 2 TABLET, AT NIGHT, START DATE TEXT: BEFORE DUODOPA

REACTIONS (4)
  - Abdominal distension [Not Recovered/Not Resolved]
  - Infusion site warmth [Recovering/Resolving]
  - Infusion site erythema [Recovering/Resolving]
  - Infusion site pain [Recovering/Resolving]

NARRATIVE: CASE EVENT DATE: 20241101
